FAERS Safety Report 20478706 (Version 1)
Quarter: 2022Q1

REPORT INFORMATION
  Report Type: Spontaneous
  Country: US (occurrence: US)
  Receive Date: 20220216
  Receipt Date: 20220216
  Transmission Date: 20220424
  Serious: No
  Sender: FDA-Public Use
  Company Number: US-SA-SAC20220210001507

PATIENT
  Sex: Female

DRUGS (13)
  1. KEVZARA [Suspect]
     Active Substance: SARILUMAB
     Indication: Rheumatoid arthritis
     Dosage: 200 MG, QOW
     Route: 058
  2. LOVENOX [Concomitant]
     Active Substance: ENOXAPARIN SODIUM
     Dosage: 20MG
  3. ARAVA [Concomitant]
     Active Substance: LEFLUNOMIDE
  4. BUPROPION HYDROCHLORIDE [Concomitant]
     Active Substance: BUPROPION HYDROCHLORIDE
     Dosage: 625MG
  5. CARVEDILOL [Concomitant]
     Active Substance: CARVEDILOL
  6. DIAZEPAM [Concomitant]
     Active Substance: DIAZEPAM
  7. FUROSEMIDE [Concomitant]
     Active Substance: FUROSEMIDE
  8. HYDROCODONE [Concomitant]
     Active Substance: HYDROCODONE
     Dosage: 5-325MG
  9. LEXAPRO [Concomitant]
     Active Substance: ESCITALOPRAM OXALATE
  10. OMEPRAZOLE [Concomitant]
     Active Substance: OMEPRAZOLE
     Dosage: 2MG
  11. OZEMPIC [Concomitant]
     Active Substance: SEMAGLUTIDE
     Dosage: (0.2 SOP 2MG/1.5M
  12. TRILEPTAL [Concomitant]
     Active Substance: OXCARBAZEPINE
     Dosage: 4MG
  13. ZOFRAN [Concomitant]
     Active Substance: ONDANSETRON HYDROCHLORIDE

REACTIONS (1)
  - Lower respiratory tract infection [Not Recovered/Not Resolved]
